FAERS Safety Report 18462580 (Version 1)
Quarter: 2020Q4

REPORT INFORMATION
  Report Type: Spontaneous
  Country: US (occurrence: US)
  Receive Date: 20201104
  Receipt Date: 20201104
  Transmission Date: 20210114
  Serious: No
  Sender: FDA-Public Use
  Company Number: US-TEVA-2020-US-1844167

PATIENT
  Sex: Female

DRUGS (1)
  1. PRIMIDONE TEVA [Suspect]
     Active Substance: PRIMIDONE
     Indication: HEADACHE
     Route: 065

REACTIONS (3)
  - Product physical issue [Unknown]
  - Middle insomnia [Unknown]
  - Drug ineffective [Unknown]

NARRATIVE: CASE EVENT DATE: 2020
